FAERS Safety Report 16972036 (Version 2)
Quarter: 2019Q4

REPORT INFORMATION
  Report Type: Spontaneous
  Country: BR (occurrence: BR)
  Receive Date: 20191029
  Receipt Date: 20191106
  Transmission Date: 20200122
  Serious: Yes (Life-Threatening)
  Sender: FDA-Public Use
  Company Number: BR-009507513-1910BRA015823

PATIENT
  Age: 65 Year
  Sex: Female
  Weight: 59 kg

DRUGS (4)
  1. BISOPROLOL FUMARATE. [Concomitant]
     Active Substance: BISOPROLOL FUMARATE
     Indication: HYPERTENSION
     Dosage: 1 TABLET DAILY
     Route: 048
  2. VIATINE [Suspect]
     Active Substance: MONTELUKAST SODIUM
     Indication: RHINITIS ALLERGIC
     Dosage: 1 TABLET DAILY
     Route: 048
     Dates: start: 20191010, end: 20191022
  3. ROSUVASTATIN. [Concomitant]
     Active Substance: ROSUVASTATIN
     Indication: BLOOD CHOLESTEROL ABNORMAL
     Dosage: 1 TABLET DAILY
     Route: 048
  4. FOLIC ACID. [Concomitant]
     Active Substance: FOLIC ACID
     Indication: SICKLE CELL TRAIT
     Dosage: 1 TABLET DAILY
     Route: 048

REACTIONS (22)
  - Headache [Unknown]
  - Rhinorrhoea [Not Recovered/Not Resolved]
  - Thirst [Not Recovered/Not Resolved]
  - Dysphonia [Unknown]
  - Epistaxis [Not Recovered/Not Resolved]
  - Dyspnoea [Unknown]
  - Heart rate abnormal [Not Recovered/Not Resolved]
  - Fatigue [Unknown]
  - Nasal congestion [Unknown]
  - Furuncle [Not Recovered/Not Resolved]
  - Chest pain [Not Recovered/Not Resolved]
  - Cardiac discomfort [Not Recovered/Not Resolved]
  - Somnolence [Recovered/Resolved]
  - Hyperaesthesia [Recovered/Resolved]
  - Pyrexia [Recovered/Resolved]
  - Lip dry [Not Recovered/Not Resolved]
  - Asthenia [Unknown]
  - Dry throat [Not Recovered/Not Resolved]
  - Facial pain [Recovered/Resolved]
  - Blood pressure abnormal [Unknown]
  - Hypersensitivity [Not Recovered/Not Resolved]
  - Skin discolouration [Unknown]

NARRATIVE: CASE EVENT DATE: 201910
